FAERS Safety Report 4864400-8 (Version None)
Quarter: 2005Q4

REPORT INFORMATION
  Report Type: 
  Country: None (occurrence: None)
  Receive Date: 20051222
  Receipt Date: 20050913
  Transmission Date: 20060501
  Serious: Yes (Disabling, Other)
  Sender: FDA-Public Use
  Company Number: CA-MERCK-0509CAN00129

PATIENT
  Age: 70 Year
  Sex: Female

DRUGS (17)
  1. VIOXX [Suspect]
     Indication: OSTEOARTHRITIS
     Route: 048
     Dates: start: 20020801, end: 20040815
  2. HYDROCHLOROTHIAZIDE AND LISINOPRIL [Concomitant]
     Indication: ANGINA PECTORIS
     Route: 065
  3. HYDROCHLOROTHIAZIDE AND LISINOPRIL [Concomitant]
     Route: 065
  4. HYDROCHLOROTHIAZIDE AND LISINOPRIL [Concomitant]
     Indication: HYPERTENSION
     Route: 065
  5. HYDROCHLOROTHIAZIDE AND LISINOPRIL [Concomitant]
     Route: 065
  6. CLOPIDOGREL BISULFATE [Concomitant]
     Route: 065
     Dates: start: 20010401
  7. CLOPIDOGREL BISULFATE [Concomitant]
     Route: 065
     Dates: start: 20041001
  8. NIFEDIPINE [Concomitant]
     Indication: ANGINA PECTORIS
     Route: 065
     Dates: start: 19980101
  9. NIFEDIPINE [Concomitant]
     Indication: HYPERTENSION
     Route: 065
     Dates: start: 19980101
  10. LEVOTHYROXINE SODIUM [Concomitant]
     Route: 065
     Dates: start: 19980801
  11. GLICLAZIDE [Concomitant]
     Route: 065
  12. METFORMIN [Concomitant]
     Route: 065
  13. ROSUVASTATIN CALCIUM [Concomitant]
     Route: 065
  14. ASPIRIN [Concomitant]
     Route: 065
  15. TRETINOIN [Concomitant]
     Route: 065
  16. AZITHROMYCIN [Concomitant]
     Indication: INFECTION
     Route: 065
  17. LISINOPRIL [Concomitant]
     Route: 065
     Dates: start: 19980101

REACTIONS (12)
  - BLOOD PRESSURE INCREASED [None]
  - CARDIOMEGALY [None]
  - DILATATION ATRIAL [None]
  - EMOTIONAL DISTRESS [None]
  - EXOSTOSIS [None]
  - FALL [None]
  - HAEMATOMA [None]
  - MITRAL VALVE STENOSIS [None]
  - OVERWEIGHT [None]
  - PELVIC HAEMATOMA [None]
  - RETINAL ARTERY OCCLUSION [None]
  - VENTRICULAR HYPERTROPHY [None]
